FAERS Safety Report 7471279-7 (Version None)
Quarter: 2011Q2

REPORT INFORMATION
  Report Type: 
  Country: None (occurrence: None)
  Receive Date: 20110510
  Receipt Date: 20110328
  Transmission Date: 20111010
  Serious: No
  Sender: FDA-Public Use
  Company Number: US-ALLERGAN-1104332US

PATIENT
  Age: 52 Year
  Sex: Female

DRUGS (1)
  1. ZYMAXID [Suspect]
     Indication: ULCERATIVE KERATITIS
     Dosage: ONE
     Dates: start: 20110326, end: 20110328

REACTIONS (6)
  - EYELIDS PRURITUS [None]
  - EYELID PTOSIS [None]
  - LACRIMATION INCREASED [None]
  - EYE PRURITUS [None]
  - EYE IRRITATION [None]
  - SWELLING FACE [None]
